FAERS Safety Report 5072043-9 (Version None)
Quarter: 2006Q3

REPORT INFORMATION
  Report Type: 
  Country: None (occurrence: None)
  Receive Date: 20060807
  Receipt Date: 20060803
  Transmission Date: 20061208
  Serious: Yes (Hospitalization)
  Sender: FDA-Public Use
  Company Number: DE-AVENTIS-200612298DE

PATIENT
  Age: 66 Year
  Sex: Female
  Weight: 81 kg

DRUGS (4)
  1. DOCETAXEL [Suspect]
     Dosage: FREQUENCY: CYCLICALLY
     Route: 042
     Dates: start: 20060710, end: 20060710
  2. GEMCITABIN [Suspect]
     Dosage: FREQUENCY: CYCLICALLY
     Route: 042
     Dates: start: 20060725, end: 20060725
  3. DEXAMETHASONE [Concomitant]
     Dates: start: 20060709, end: 20060713
  4. NEULASTA [Concomitant]
     Route: 058
     Dates: start: 20060711, end: 20060711

REACTIONS (4)
  - ABDOMINAL PAIN UPPER [None]
  - DEHYDRATION [None]
  - DIARRHOEA [None]
  - GENERAL PHYSICAL HEALTH DETERIORATION [None]
